FAERS Safety Report 20924067 (Version 1)
Quarter: 2022Q2

REPORT INFORMATION
  Report Type: Spontaneous
  Country: US (occurrence: None)
  Receive Date: 20220606
  Receipt Date: 20220606
  Transmission Date: 20220721
  Serious: Yes (Disabling)
  Sender: FDA-Public Use
  Company Number: None

PATIENT
  Age: 38 Year
  Sex: Female

DRUGS (1)
  1. PAXLOVID [Suspect]
     Active Substance: NIRMATRELVIR\RITONAVIR
     Indication: Coronavirus test positive
     Dates: start: 20220520, end: 20220525

REACTIONS (3)
  - Oropharyngeal pain [None]
  - Coronavirus test positive [None]
  - Symptom recurrence [None]

NARRATIVE: CASE EVENT DATE: 20220606
